FAERS Safety Report 8363269-7 (Version None)
Quarter: 2012Q2

REPORT INFORMATION
  Report Type: 
  Country: None (occurrence: None)
  Receive Date: 20120516
  Receipt Date: 20110518
  Transmission Date: 20120825
  Serious: No
  Sender: FDA-Public Use
  Company Number: US-GLAXOSMITHKLINE-A0927837A

PATIENT
  Age: 47 Year
  Sex: Female

DRUGS (1)
  1. BACTROBAN [Suspect]
     Indication: PRODUCT USED FOR UNKNOWN INDICATION
     Dosage: 1APP PER DAY
     Route: 047
     Dates: start: 20110517, end: 20110518

REACTIONS (1)
  - DRUG DISPENSING ERROR [None]
